FAERS Safety Report 24893685 (Version 5)
Quarter: 2025Q1

REPORT INFORMATION
  Report Type: Spontaneous
  Country: US (occurrence: US)
  Receive Date: 20250128
  Receipt Date: 20250307
  Transmission Date: 20250408
  Serious: Yes (Other)
  Sender: ROCHE
  Company Number: US-ROCHE-10000184476

PATIENT
  Age: 58 Year
  Sex: Male

DRUGS (8)
  1. XOLAIR PFS [Suspect]
     Active Substance: OMALIZUMAB
     Indication: Idiopathic urticaria
     Dosage: FULL DOSE IS 300MG EVERY 4 WEEKS IN THE FORM OF 2 - 150MG PFS
     Route: 058
     Dates: start: 2023
  2. XOLAIR PFS [Suspect]
     Active Substance: OMALIZUMAB
     Indication: Urticaria
  3. XOLAIR PFS [Suspect]
     Active Substance: OMALIZUMAB
     Indication: Furuncle
  4. ZITHROMAX [Concomitant]
     Active Substance: AZITHROMYCIN DIHYDRATE
     Indication: Pneumonia
     Dates: start: 202501, end: 202501
  5. PREDNISONE [Concomitant]
     Active Substance: PREDNISONE
     Indication: Pneumonia
     Dates: start: 202501, end: 202501
  6. XOPENEX [Concomitant]
     Active Substance: LEVALBUTEROL HYDROCHLORIDE
     Indication: Pneumonia
     Dates: start: 202501
  7. KEFLEX [Concomitant]
     Active Substance: CEPHALEXIN
     Indication: Pneumonia
     Dates: start: 202501, end: 202501
  8. DOXYCYCLINE [Concomitant]
     Active Substance: DOXYCYCLINE
     Indication: Pneumonia
     Dates: start: 202501, end: 202501

REACTIONS (6)
  - Cough [Unknown]
  - Underdose [Unknown]
  - Influenza [Recovered/Resolved]
  - Pneumonia [Recovered/Resolved]
  - Pulmonary oedema [Unknown]
  - Wrong technique in product usage process [Unknown]

NARRATIVE: CASE EVENT DATE: 20241226
